FAERS Safety Report 8985812 (Version 1)
Quarter: 2012Q4

REPORT INFORMATION
  Report Type: 
  Country: IL (occurrence: IL)
  Receive Date: 20121226
  Receipt Date: 20121226
  Transmission Date: 20130627
  Serious: Yes (Other)
  Sender: FDA-Public Use
  Company Number: PHHY2012IL117118

PATIENT
  Age: 61 Year
  Sex: Male

DRUGS (5)
  1. LEVODOPA+CARBIDOPA [Suspect]
     Indication: PARKINSON^S DISEASE
     Dosage: 1/4 of a pill
  2. SELEGILINE [Suspect]
     Indication: PARKINSON^S DISEASE
  3. ROPINIROLE [Suspect]
     Indication: PARKINSON^S DISEASE
     Dosage: 2 mg, QID
  4. BIPERIDEN [Suspect]
     Indication: PARKINSON^S DISEASE
  5. LEVODOPA [Suspect]
     Indication: PARKINSON^S DISEASE

REACTIONS (7)
  - Hypersexuality [Recovered/Resolved]
  - Tremor [Recovered/Resolved]
  - On and off phenomenon [Recovered/Resolved]
  - Back pain [Recovered/Resolved]
  - Erectile dysfunction [Recovered/Resolved]
  - Ejaculation delayed [Recovered/Resolved]
  - Anorgasmia [Recovered/Resolved]
